FAERS Safety Report 4753004-3 (Version None)
Quarter: 2005Q3

REPORT INFORMATION
  Report Type: 
  Country: None (occurrence: None)
  Receive Date: 20050826
  Receipt Date: 20050622
  Transmission Date: 20060218
  Serious: Yes (Hospitalization)
  Sender: FDA-Public Use
  Company Number: US-MERCK-0506USA03313

PATIENT
  Age: 55 Year
  Sex: Male
  Weight: 105 kg

DRUGS (3)
  1. VIOXX [Suspect]
     Indication: ARTHRITIS
     Route: 048
     Dates: start: 20010731, end: 20040901
  2. TYLENOL [Concomitant]
     Indication: PAIN MANAGEMENT
     Route: 065
     Dates: start: 19950101
  3. TYLENOL [Concomitant]
     Indication: PROPHYLAXIS
     Route: 065
     Dates: start: 19950101

REACTIONS (2)
  - BLOOD CHOLESTEROL INCREASED [None]
  - MYOCARDIAL INFARCTION [None]
